FAERS Safety Report 17544437 (Version 6)
Quarter: 2025Q1

REPORT INFORMATION
  Report Type: Spontaneous
  Country: DE (occurrence: DE)
  Receive Date: 20200316
  Receipt Date: 20250117
  Transmission Date: 20250409
  Serious: Yes (Death, Life-Threatening, Hospitalization, Other)
  Sender: MYLAN
  Company Number: DE-002147023-NVSC2020DE041400

PATIENT
  Age: 72 Year
  Sex: Male
  Weight: 57.8 kg

DRUGS (6)
  1. EVEROLIMUS [Suspect]
     Active Substance: EVEROLIMUS
     Indication: Immunosuppressant drug therapy
     Dosage: 1.5 MILLIGRAM, BID
     Route: 048
  2. EVEROLIMUS [Suspect]
     Active Substance: EVEROLIMUS
     Indication: Heart transplant
  3. MYCOPHENOLATE MOFETIL [Suspect]
     Active Substance: MYCOPHENOLATE MOFETIL
     Indication: Heart transplant
     Dosage: 720 MILLIGRAM, BID
     Route: 048
  4. MYCOPHENOLATE MOFETIL [Suspect]
     Active Substance: MYCOPHENOLATE MOFETIL
     Indication: Immunosuppressant drug therapy
     Dosage: 500 MILLIGRAM, BID PER OS
     Route: 048
  5. ENVARSUS XR [Suspect]
     Active Substance: TACROLIMUS
     Indication: Heart transplant
     Dosage: 1.5 MILLIGRAM, BID PER OS
     Route: 048
  6. ENVARSUS XR [Suspect]
     Active Substance: TACROLIMUS
     Indication: Immunosuppressant drug therapy
     Dosage: 2 MILLIGRAM, BID
     Route: 048

REACTIONS (12)
  - Multiple organ dysfunction syndrome [Fatal]
  - Septic shock [Fatal]
  - Acute respiratory distress syndrome [Recovered/Resolved]
  - Superinfection viral [Recovering/Resolving]
  - Metapneumovirus infection [Recovering/Resolving]
  - Pneumonitis [Recovering/Resolving]
  - Interstitial lung disease [Recovering/Resolving]
  - Post transplant lymphoproliferative disorder [Unknown]
  - Renal impairment [Unknown]
  - Device related infection [Unknown]
  - Traumatic lung injury [Recovering/Resolving]
  - Off label use [Unknown]
